FAERS Safety Report 5672370-8 (Version None)
Quarter: 2008Q1

REPORT INFORMATION
  Report Type: 
  Country: None (occurrence: None)
  Receive Date: 20080318
  Receipt Date: 20080318
  Transmission Date: 20080703
  Serious: No
  Sender: FDA-Public Use
  Company Number: None

PATIENT
  Age: 25 Year
  Sex: Female
  Weight: 54.4316 kg

DRUGS (2)
  1. LEVAQUIN [Suspect]
     Indication: BRONCHITIS
     Dosage: 1 DAILY PO
     Route: 048
     Dates: start: 20080303, end: 20080310
  2. LEVAQUIN [Suspect]
     Indication: SINUSITIS
     Dosage: 1 DAILY PO
     Route: 048
     Dates: start: 20080303, end: 20080310

REACTIONS (4)
  - ANOREXIA [None]
  - DRUG INEFFECTIVE [None]
  - INSOMNIA [None]
  - PRURITUS [None]
